FAERS Safety Report 7961561-9 (Version None)
Quarter: 2011Q4

REPORT INFORMATION
  Report Type: 
  Country: None (occurrence: None)
  Receive Date: 20111207
  Receipt Date: 20111204
  Transmission Date: 20120403
  Serious: Yes (Death, Other)
  Sender: FDA-Public Use
  Company Number: PHHY2011MY90199

PATIENT
  Sex: Male

DRUGS (2)
  1. ASPIRIN [Concomitant]
     Dosage: UNK
  2. GLEEVEC [Suspect]
     Indication: GASTROINTESTINAL STROMAL TUMOUR
     Dosage: 400 MG,
     Route: 065
     Dates: start: 20110701

REACTIONS (3)
  - MYOCARDIAL INFARCTION [None]
  - VIITH NERVE PARALYSIS [None]
  - TRANSIENT ISCHAEMIC ATTACK [None]
